FAERS Safety Report 8302533-4 (Version None)
Quarter: 2012Q2

REPORT INFORMATION
  Report Type: 
  Country: None (occurrence: None)
  Receive Date: 20120420
  Receipt Date: 20120413
  Transmission Date: 20120825
  Serious: Yes (Other)
  Sender: FDA-Public Use
  Company Number: VE-ROCHE-1059513

PATIENT
  Sex: Female
  Weight: 54 kg

DRUGS (3)
  1. DEFLAZACORT [Concomitant]
     Route: 048
  2. LEVOTHYROXINE SODIUM [Concomitant]
     Indication: TYPE 1 DIABETES MELLITUS
     Route: 048
  3. MABTHERA [Suspect]
     Indication: RHEUMATOID ARTHRITIS
     Route: 042
     Dates: start: 20120412

REACTIONS (3)
  - THIRST [None]
  - HYPERGLYCAEMIA [None]
  - ABDOMINAL PAIN UPPER [None]
